FAERS Safety Report 6482826-6 (Version None)
Quarter: 2009Q4

REPORT INFORMATION
  Report Type: 
  Country: None (occurrence: None)
  Receive Date: 20091209
  Receipt Date: 20091201
  Transmission Date: 20100525
  Serious: Yes (Hospitalization, Other)
  Sender: FDA-Public Use
  Company Number: DE-JNJFOC-20090104085

PATIENT
  Age: 82 Year
  Sex: Female

DRUGS (13)
  1. TAVANIC [Suspect]
     Indication: URINARY TRACT INFECTION
     Route: 048
     Dates: start: 20080721, end: 20080729
  2. AKINETON [Concomitant]
     Indication: PARKINSONISM
     Route: 048
  3. ATACAND [Concomitant]
     Indication: HYPERTENSION
     Route: 048
  4. FUROSEMIDE [Concomitant]
     Indication: RENAL IMPAIRMENT
     Route: 048
  5. HERPHONAL [Concomitant]
     Indication: ANXIETY
     Route: 048
  6. NOVALGIN [Concomitant]
     Indication: ARTHRALGIA
     Route: 048
  7. NOVORAPID [Concomitant]
     Indication: TYPE 2 DIABETES MELLITUS
     Route: 058
  8. PANTOZOL [Concomitant]
     Indication: PROPHYLAXIS AGAINST GASTROINTESTINAL ULCER
     Route: 048
  9. PROTAPHANE MC [Concomitant]
     Indication: TYPE 2 DIABETES MELLITUS
     Route: 058
  10. SOLIAN [Concomitant]
     Indication: SCHIZOPHRENIA
     Route: 048
  11. T-LONG [Concomitant]
     Indication: ARTHRALGIA
     Route: 048
  12. LORAZEPAM [Concomitant]
     Indication: SCHIZOPHRENIA
     Route: 048
  13. TRAMADOL HCL [Concomitant]
     Indication: ARTHRALGIA
     Route: 048

REACTIONS (4)
  - ABDOMINAL PAIN [None]
  - ANAEMIA [None]
  - DIARRHOEA [None]
  - GASTROINTESTINAL HAEMORRHAGE [None]
